FAERS Safety Report 20607805 (Version 1)
Quarter: 2022Q1

REPORT INFORMATION
  Report Type: Spontaneous
  Country: US (occurrence: None)
  Receive Date: 20220317
  Receipt Date: 20220317
  Transmission Date: 20220424
  Serious: Yes (Death)
  Sender: FDA-Public Use
  Company Number: None

PATIENT
  Age: 79 Year
  Sex: Male
  Weight: 73.48 kg

DRUGS (19)
  1. ABIRATERONE [Suspect]
     Active Substance: ABIRATERONE
     Indication: Prostate cancer
     Dosage: FREQUENCY : DAILY;?
     Route: 048
  2. ZOSTAVAX [Concomitant]
     Active Substance: VARICELLA-ZOSTER VIRUS STRAIN OKA/MERCK LIVE ANTIGEN
  3. VITAMIN D3 [Concomitant]
     Active Substance: CHOLECALCIFEROL
  4. VITAMIN B12 [Concomitant]
     Active Substance: CYANOCOBALAMIN
  5. POTASSIUM GLUCONATE [Concomitant]
     Active Substance: POTASSIUM GLUCONATE
  6. LISINOPRIL [Concomitant]
     Active Substance: LISINOPRIL
  7. LEUCOVORIN [Concomitant]
     Active Substance: LEUCOVORIN
  8. IRON [Concomitant]
     Active Substance: IRON
  9. GENTAMICIN [Concomitant]
     Active Substance: GENTAMICIN
  10. FLUOROURACIL [Concomitant]
     Active Substance: FLUOROURACIL
  11. CLOMIPHENE [Concomitant]
     Active Substance: CLOMIPHENE
  12. CIPROFLOXACIN [Concomitant]
     Active Substance: CIPROFLOXACIN
  13. CIALIS [Concomitant]
     Active Substance: TADALAFIL
  14. CHOLESTYRAMINE [Concomitant]
     Active Substance: CHOLESTYRAMINE
  15. CASODEX [Concomitant]
     Active Substance: BICALUTAMIDE
  16. CALCIUM [Concomitant]
     Active Substance: CALCIUM
  17. AVODART [Concomitant]
     Active Substance: DUTASTERIDE
  18. ATENOLOL [Concomitant]
     Active Substance: ATENOLOL
  19. ALFUZOSIN [Concomitant]
     Active Substance: ALFUZOSIN

REACTIONS (1)
  - Death [None]
